FAERS Safety Report 8785641 (Version 2)
Quarter: 2012Q4

REPORT INFORMATION
  Report Type: 
  Country: US (occurrence: US)
  Receive Date: 20120914
  Receipt Date: 20120917
  Transmission Date: 20130627
  Serious: Yes (Hospitalization)
  Sender: FDA-Public Use
  Company Number: US-ABBOTT-12P-163-0977402-00

PATIENT
  Age: 16 Year
  Sex: Female

DRUGS (4)
  1. DEPAKOTE [Suspect]
     Indication: PRODUCT USED FOR UNKNOWN INDICATION
  2. SABRIL [Suspect]
     Indication: COMPLEX PARTIAL SEIZURES
     Route: 048
     Dates: start: 20120815
  3. SABRIL [Suspect]
     Route: 048
  4. TOPAMAX [Concomitant]
     Indication: PRODUCT USED FOR UNKNOWN INDICATION

REACTIONS (4)
  - Crying [Unknown]
  - Dizziness [Unknown]
  - Irritability [Unknown]
  - Drug level increased [Unknown]
